FAERS Safety Report 12919904 (Version 1)
Quarter: 2016Q4

REPORT INFORMATION
  Report Type: Spontaneous
  Country: IT (occurrence: IT)
  Receive Date: 20161107
  Receipt Date: 20161107
  Transmission Date: 20170207
  Serious: Yes (Other)
  Sender: FDA-Public Use
  Company Number: IT-PFIZER INC-2016105983

PATIENT
  Age: 45 Year
  Sex: Female
  Weight: 61 kg

DRUGS (8)
  1. ZOFRAN [Suspect]
     Active Substance: ONDANSETRON HYDROCHLORIDE
     Indication: PROCEDURAL VOMITING
     Dosage: 1 DF, TOTAL
     Route: 041
     Dates: start: 20160128, end: 20160128
  2. CIPRALEX [Concomitant]
     Active Substance: ESCITALOPRAM OXALATE
     Indication: ANXIETY
     Dosage: 10 MG, UNK
     Route: 048
     Dates: start: 20140201
  3. MORPHIN [Suspect]
     Active Substance: MORPHINE
     Indication: PROCEDURAL PAIN
     Dosage: 1 DF, TOTAL
     Route: 041
     Dates: start: 20160128, end: 20160128
  4. CEFAMEZIN [Suspect]
     Active Substance: CEFAZOLIN
     Indication: ENDOCARDITIS PROPHYLAXIS
     Dosage: 2 G, TOTAL
     Route: 041
     Dates: start: 20160128, end: 20160128
  5. SELOKEN /00376902/ [Concomitant]
     Active Substance: METOPROLOL TARTRATE
     Indication: VENTRICULAR ARRHYTHMIA
     Dosage: 100 MG, UNK
     Route: 048
     Dates: start: 20130301
  6. PANTOPRAZOLE MYLAN [Concomitant]
     Active Substance: PANTOPRAZOLE SODIUM
     Indication: CHRONIC GASTRITIS
     Dosage: 20 MG, UNK
     Route: 048
     Dates: start: 20100101
  7. TORVAST [Concomitant]
     Active Substance: ATORVASTATIN
     Indication: TYPE IIA HYPERLIPIDAEMIA
     Dosage: 10 MG, UNK
     Route: 048
     Dates: start: 20150210
  8. LYRICA [Concomitant]
     Active Substance: PREGABALIN
     Indication: ULNAR NEURITIS
     Dosage: 150 MG, UNK
     Route: 048
     Dates: start: 20140701

REACTIONS (3)
  - Urticaria [Recovered/Resolved]
  - Pruritus [Recovered/Resolved]
  - Epiglottic oedema [Recovered/Resolved]

NARRATIVE: CASE EVENT DATE: 20160128
